FAERS Safety Report 8063451-2 (Version None)
Quarter: 2012Q1

REPORT INFORMATION
  Report Type: 
  Country: None (occurrence: None)
  Receive Date: 20120123
  Receipt Date: 20120119
  Transmission Date: 20120608
  Serious: Yes (Life-Threatening)
  Sender: FDA-Public Use
  Company Number: PHHY2011TR85127

PATIENT

DRUGS (2)
  1. ONBREZ [Suspect]
  2. SPIRIVA [Concomitant]

REACTIONS (1)
  - MYOCARDIAL INFARCTION [None]
